FAERS Safety Report 21193037 (Version 5)
Quarter: 2022Q4

REPORT INFORMATION
  Report Type: Spontaneous
  Country: US (occurrence: US)
  Receive Date: 20220810
  Receipt Date: 20221117
  Transmission Date: 20230112
  Serious: Yes (Hospitalization)
  Sender: FDA-Public Use
  Company Number: US-UNITED THERAPEUTICS-UNT-2022-010535

PATIENT
  Sex: Female
  Weight: 71.202 kg

DRUGS (6)
  1. TYVASO [Suspect]
     Active Substance: TREPROSTINIL
     Indication: Pulmonary arterial hypertension
     Dosage: UNK
     Dates: start: 20220415
  2. TYVASO [Suspect]
     Active Substance: TREPROSTINIL
     Indication: Lung disorder
     Dosage: 18-72 ?G, QID
     Dates: start: 2022, end: 2022
  3. TYVASO [Suspect]
     Active Substance: TREPROSTINIL
     Indication: Hypoxia
     Dosage: 24 ?G
     Dates: start: 2022, end: 2022
  4. TYVASO [Suspect]
     Active Substance: TREPROSTINIL
     Dosage: 18 ?G
     Dates: start: 2022, end: 2022
  5. TYVASO [Suspect]
     Active Substance: TREPROSTINIL
     Dosage: UNK
     Dates: start: 2022, end: 2022
  6. TYVASO [Suspect]
     Active Substance: TREPROSTINIL
     Dosage: 54 ?G, QID
     Dates: start: 20220707, end: 2022

REACTIONS (15)
  - Dyspnoea [Not Recovered/Not Resolved]
  - Cough [Unknown]
  - COVID-19 [Unknown]
  - Vomiting [Unknown]
  - Headache [Unknown]
  - Therapy non-responder [Unknown]
  - Dyspnoea exertional [Unknown]
  - Chest pain [Recovered/Resolved]
  - Dyspepsia [Unknown]
  - Ulcer [Unknown]
  - Weight decreased [Unknown]
  - Hypoxia [Unknown]
  - Lung disorder [Unknown]
  - Product dose omission issue [Recovered/Resolved]
  - Off label use [Recovered/Resolved]

NARRATIVE: CASE EVENT DATE: 20220101
